FAERS Safety Report 12125981 (Version 1)
Quarter: 2016Q1

REPORT INFORMATION
  Report Type: Spontaneous
  Country: GB (occurrence: GB)
  Receive Date: 20160229
  Receipt Date: 20160229
  Transmission Date: 20160526
  Serious: Yes (Other)
  Sender: FDA-Public Use
  Company Number: PHFR2016GB001889

PATIENT
  Age: 31 Year
  Sex: Female

DRUGS (5)
  1. NILOTINIB [Suspect]
     Active Substance: NILOTINIB
     Dosage: 200 MG, QOD
     Route: 065
     Dates: start: 20131211
  2. NILOTINIB [Suspect]
     Active Substance: NILOTINIB
     Indication: PRODUCT USED FOR UNKNOWN INDICATION
     Dosage: 400 MG, QD
     Route: 065
  3. NILOTINIB [Suspect]
     Active Substance: NILOTINIB
     Dosage: 200 MG, UNK
     Route: 065
     Dates: start: 20120626
  4. NILOTINIB [Suspect]
     Active Substance: NILOTINIB
     Dosage: 200 MG, Q72H
     Route: 065
     Dates: start: 20140116, end: 20140216
  5. NILOTINIB [Suspect]
     Active Substance: NILOTINIB
     Dosage: 400 MG, QW (200 MGX2 PER WEEK)
     Route: 065
     Dates: start: 20140417, end: 20140703

REACTIONS (4)
  - Thyroid cancer [Unknown]
  - Dyspnoea [Unknown]
  - Pulmonary hypertension [Unknown]
  - Headache [Not Recovered/Not Resolved]

NARRATIVE: CASE EVENT DATE: 20120626
